FAERS Safety Report 5706637-1 (Version None)
Quarter: 2008Q2

REPORT INFORMATION
  Report Type: 
  Country: None (occurrence: None)
  Receive Date: 20080414
  Receipt Date: 20061017
  Transmission Date: 20081010
  Serious: Yes (Other)
  Sender: FDA-Public Use
  Company Number: 2006VX001972

PATIENT
  Age: 82 Year
  Sex: Female

DRUGS (2)
  1. LEVATE (AMITRIPTYLINE HYDROCHLORIDE) [Suspect]
     Dosage: 10 MG; QID; PO
     Route: 048
  2. THYROID TAB [Concomitant]

REACTIONS (3)
  - ANXIETY [None]
  - CEREBRAL HAEMORRHAGE [None]
  - DISORIENTATION [None]
